FAERS Safety Report 12840100 (Version 2)
Quarter: 2016Q4

REPORT INFORMATION
  Report Type: Spontaneous
  Country: US (occurrence: US)
  Receive Date: 20161012
  Receipt Date: 20161017
  Transmission Date: 20170207
  Serious: No
  Sender: FDA-Public Use
  Company Number: US-TEVA-683636USA

PATIENT
  Age: 9 Year
  Sex: Female

DRUGS (1)
  1. AMIKACIN [Suspect]
     Active Substance: AMIKACIN
     Indication: CYSTIC FIBROSIS
     Route: 055
     Dates: start: 201604

REACTIONS (2)
  - Epistaxis [Unknown]
  - Incorrect route of drug administration [Unknown]
